FAERS Safety Report 10571663 (Version 1)
Quarter: 2014Q4

REPORT INFORMATION
  Report Type: Report from Study
  Country: US (occurrence: US)
  Receive Date: 20141107
  Receipt Date: 20141107
  Transmission Date: 20150529
  Serious: Yes (Hospitalization)
  Sender: FDA-Public Use
  Company Number: US-PURDUE-USA-2014-0118732

PATIENT
  Sex: Female

DRUGS (2)
  1. BTDS PATCH [Suspect]
     Active Substance: BUPRENORPHINE
     Indication: BACK PAIN
     Dosage: 20 MCG/HR, WEEKLY
     Route: 062
     Dates: start: 20140916
  2. BTDS PATCH [Suspect]
     Active Substance: BUPRENORPHINE
     Dosage: UNK MCG/HR, WEEKLY
     Route: 062
     Dates: start: 201211

REACTIONS (1)
  - Intervertebral disc protrusion [Unknown]
